FAERS Safety Report 6928790-4 (Version None)
Quarter: 2010Q3

REPORT INFORMATION
  Report Type: 
  Country: None (occurrence: None)
  Receive Date: 20100817
  Receipt Date: 20100805
  Transmission Date: 20110219
  Serious: Yes (Hospitalization)
  Sender: FDA-Public Use
  Company Number: IT-ELI_LILLY_AND_COMPANY-IT201008001472

PATIENT
  Sex: Female

DRUGS (8)
  1. ALIMTA [Suspect]
     Indication: NEOPLASM MALIGNANT
     Dosage: 400 MG, PER CYCLE
     Route: 042
     Dates: start: 20100614
  2. CARBOPLATIN [Concomitant]
     Indication: NEOPLASM MALIGNANT
     Dosage: 400 MG, PER CYCLE
     Route: 042
     Dates: start: 20100614
  3. DECADRON [Concomitant]
  4. KYTRIL [Concomitant]
  5. EUTIROX [Concomitant]
  6. ROCALTROL [Concomitant]
  7. MEPRAL [Concomitant]
  8. DOBETIN [Concomitant]

REACTIONS (5)
  - ASTHENIA [None]
  - CONSTIPATION [None]
  - MUSCLE SPASMS [None]
  - NAUSEA [None]
  - VOMITING [None]
